FAERS Safety Report 6900618-8 (Version None)
Quarter: 2010Q3

REPORT INFORMATION
  Report Type: 
  Country: None (occurrence: None)
  Receive Date: 20100803
  Receipt Date: 20100723
  Transmission Date: 20110219
  Serious: No
  Sender: FDA-Public Use
  Company Number: US-JNJFOC-20100708137

PATIENT
  Sex: Female
  Weight: 47.17 kg

DRUGS (1)
  1. FENTANYL CITRATE [Suspect]
     Indication: GASTRIC CANCER
     Route: 062
     Dates: end: 20100401

REACTIONS (2)
  - DRUG DOSE OMISSION [None]
  - PAIN [None]
